FAERS Safety Report 10049531 (Version 1)
Quarter: 2014Q1

REPORT INFORMATION
  Report Type: Spontaneous
  Country: US (occurrence: None)
  Receive Date: 20140331
  Receipt Date: 20140331
  Transmission Date: 20141002
  Serious: Yes (Disabling)
  Sender: FDA-Public Use
  Company Number: None

PATIENT
  Age: 49 Year
  Sex: Female
  Weight: 83.46 kg

DRUGS (1)
  1. XARELTO [Suspect]
     Indication: DEEP VEIN THROMBOSIS
     Route: 048
     Dates: start: 20130624, end: 20130724

REACTIONS (8)
  - Headache [None]
  - Muscle spasms [None]
  - Fatigue [None]
  - Joint swelling [None]
  - Abdominal discomfort [None]
  - Paraesthesia [None]
  - Depression [None]
  - Arthralgia [None]
